FAERS Safety Report 21727936 (Version 1)
Quarter: 2022Q4

REPORT INFORMATION
  Report Type: Spontaneous
  Country: US (occurrence: None)
  Receive Date: 20221213
  Receipt Date: 20221213
  Transmission Date: 20230113
  Serious: No
  Sender: FDA-Public Use
  Company Number: None

PATIENT
  Sex: Female
  Weight: 71.67 kg

DRUGS (11)
  1. TEMOZOLOMIDE [Suspect]
     Active Substance: TEMOZOLOMIDE
     Indication: Brain neoplasm malignant
     Dosage: FREQUENCY : DAILY;?
     Route: 048
     Dates: start: 202204
  2. TEMOZOLOMIDE [Suspect]
     Active Substance: TEMOZOLOMIDE
     Indication: Brain neoplasm malignant
     Dosage: FREQUENCY : DAILY;?
     Route: 048
     Dates: start: 202204
  3. CALCIUM [Concomitant]
     Active Substance: CALCIUM
  4. KEPPRA [Concomitant]
     Active Substance: LEVETIRACETAM
  5. KEVOTHYROXINE [Concomitant]
  6. PRAVASTATIN [Concomitant]
     Active Substance: PRAVASTATIN
  7. SYMBICORT [Concomitant]
     Active Substance: BUDESONIDE\FORMOTEROL FUMARATE DIHYDRATE
  8. TOLTERODINE [Concomitant]
     Active Substance: TOLTERODINE
  9. VITAMIN C [Concomitant]
     Active Substance: ASCORBIC ACID
  10. VITAMIN D3 [Concomitant]
     Active Substance: CHOLECALCIFEROL
  11. ZINC [Concomitant]
     Active Substance: ZINC

REACTIONS (1)
  - Hospice care [None]
